FAERS Safety Report 25616602 (Version 1)
Quarter: 2025Q3

REPORT INFORMATION
  Report Type: Spontaneous
  Country: US (occurrence: US)
  Receive Date: 20250729
  Receipt Date: 20250729
  Transmission Date: 20251020
  Serious: Yes (Hospitalization, Other)
  Sender: STRIDES
  Company Number: US-STRIDES ARCOLAB LIMITED-2025SP009235

PATIENT
  Age: 26 Year
  Sex: Male

DRUGS (10)
  1. PHENOBARBITAL [Suspect]
     Active Substance: PHENOBARBITAL
     Indication: Epilepsy
     Route: 065
  2. MIDAZOLAM [Suspect]
     Active Substance: MIDAZOLAM
     Indication: Epilepsy
     Route: 065
  3. METHYLENE BLUE [Suspect]
     Active Substance: METHYLENE BLUE
     Indication: Shock
     Route: 065
  4. ACETYLCYSTEINE [Suspect]
     Active Substance: ACETYLCYSTEINE
     Indication: Drug therapy
     Route: 065
  5. DEFEROXAMINE [Suspect]
     Active Substance: DEFEROXAMINE MESYLATE
     Indication: Drug therapy
     Route: 065
  6. VITAMIN C [Suspect]
     Active Substance: ASCORBIC ACID
     Indication: Drug therapy
     Route: 065
  7. VITAMIN E [Suspect]
     Active Substance: .ALPHA.-TOCOPHEROL
     Indication: Drug therapy
     Route: 065
  8. ASPIRIN [Suspect]
     Active Substance: ASPIRIN
     Indication: Drug therapy
     Route: 065
  9. DEXAMETHASONE [Suspect]
     Active Substance: DEXAMETHASONE
     Indication: Drug therapy
     Route: 065
  10. SODIUM BICARBONATE [Suspect]
     Active Substance: SODIUM BICARBONATE
     Indication: Metabolic acidosis
     Route: 065

REACTIONS (2)
  - Multiple organ dysfunction syndrome [Unknown]
  - Condition aggravated [Unknown]
